FAERS Safety Report 10087977 (Version 1)
Quarter: 2014Q2

REPORT INFORMATION
  Report Type: Spontaneous
  Country: US (occurrence: US)
  Receive Date: 20140419
  Receipt Date: 20140419
  Transmission Date: 20141212
  Serious: Yes (Other)
  Sender: FDA-Public Use
  Company Number: US-AMGEN INC.-USASP2014026886

PATIENT
  Age: 56 Year
  Sex: Female

DRUGS (1)
  1. PROLIA [Suspect]
     Indication: OSTEOPOROSIS POSTMENOPAUSAL
     Dosage: UNK
     Route: 065
     Dates: start: 2014

REACTIONS (6)
  - Ovarian cyst [Unknown]
  - Palpitations [Recovered/Resolved]
  - Mobility decreased [Unknown]
  - Back pain [Unknown]
  - Hypoaesthesia [Unknown]
  - Myalgia [Unknown]
